FAERS Safety Report 7201356-7 (Version None)
Quarter: 2010Q4

REPORT INFORMATION
  Report Type: 
  Country: None (occurrence: None)
  Receive Date: 20101227
  Receipt Date: 20101227
  Transmission Date: 20110411
  Serious: Yes (Life-Threatening, Hospitalization, Other)
  Sender: FDA-Public Use
  Company Number: None

PATIENT
  Age: 57 Year
  Sex: Female
  Weight: 63.5036 kg

DRUGS (1)
  1. DARVOCET [Suspect]
     Indication: INTERVERTEBRAL DISC PROTRUSION
     Dosage: 100-650 MG-TB 3-4 DAILY

REACTIONS (1)
  - ATRIAL FIBRILLATION [None]
